FAERS Safety Report 19204791 (Version 3)
Quarter: 2021Q3

REPORT INFORMATION
  Report Type: Report from Study
  Country: US (occurrence: US)
  Receive Date: 20210503
  Receipt Date: 20210803
  Transmission Date: 20211014
  Serious: No
  Sender: FDA-Public Use
  Company Number: US-KYOWAKIRIN-2021BKK006773

PATIENT

DRUGS (4)
  1. CRYSVITA [Suspect]
     Active Substance: BUROSUMAB-TWZA
     Dosage: 20 MG, 1X/2 WEEKS
     Route: 058
     Dates: start: 20210605
  2. CRYSVITA [Suspect]
     Active Substance: BUROSUMAB-TWZA
     Dosage: 30 MG, 1X/2 WEEKS
     Route: 058
     Dates: start: 20210605
  3. CRYSVITA [Suspect]
     Active Substance: BUROSUMAB-TWZA
     Indication: HEREDITARY HYPOPHOSPHATAEMIC RICKETS
     Dosage: 30 MG, 1X/2 WEEKS
     Route: 058
     Dates: start: 20200605, end: 2021
  4. CRYSVITA [Suspect]
     Active Substance: BUROSUMAB-TWZA
     Indication: HEREDITARY HYPOPHOSPHATAEMIC RICKETS
     Dosage: 20 MG, 1X/2 WEEKS
     Route: 058
     Dates: start: 20200605, end: 2021

REACTIONS (3)
  - Pain in extremity [Not Recovered/Not Resolved]
  - Influenza [Unknown]
  - Nasopharyngitis [Unknown]

NARRATIVE: CASE EVENT DATE: 2021
